FAERS Safety Report 7323279-5 (Version None)
Quarter: 2011Q1

REPORT INFORMATION
  Report Type: 
  Country: None (occurrence: None)
  Receive Date: 20110301
  Receipt Date: 20110223
  Transmission Date: 20110831
  Serious: Yes (Life-Threatening, Hospitalization)
  Sender: FDA-Public Use
  Company Number: IT-ELI_LILLY_AND_COMPANY-IT201102006734

PATIENT
  Sex: Female

DRUGS (8)
  1. EUTIROX [Concomitant]
     Indication: HYPOTHYROIDISM
     Dosage: 100 UG, UNKNOWN
     Route: 048
  2. INDERAL [Concomitant]
     Dosage: 40 MG, UNK
  3. GLUCOPHAGE [Concomitant]
     Indication: DIABETES MELLITUS
     Dosage: 3 G, DAILY (1/D)
     Dates: start: 20060101, end: 20101207
  4. EFFEXOR [Concomitant]
     Dosage: 75 MG, UNK
  5. FEDRA [Concomitant]
     Dosage: 1 D/F, UNK
  6. BYETTA [Suspect]
     Indication: DIABETES MELLITUS
     Dosage: 5 UG, 2/D
     Route: 058
     Dates: start: 20060101, end: 20101207
  7. COAPROVEL [Concomitant]
     Dosage: 1 D/F, UNK
     Route: 048
  8. PARIET [Concomitant]
     Dosage: 20 MG, UNK

REACTIONS (5)
  - RENAL FAILURE [None]
  - LACTIC ACIDOSIS [None]
  - HYPERKALAEMIA [None]
  - VOMITING [None]
  - DIARRHOEA [None]
